FAERS Safety Report 10301147 (Version 1)
Quarter: 2014Q3

REPORT INFORMATION
  Report Type: Spontaneous
  Country: US (occurrence: US)
  Receive Date: 20140714
  Receipt Date: 20140714
  Transmission Date: 20150326
  Serious: Yes (Other)
  Sender: FDA-Public Use
  Company Number: US-PFIZER INC-2014195853

PATIENT
  Age: 77 Year
  Sex: Male
  Weight: 126.53 kg

DRUGS (2)
  1. CELEBREX [Suspect]
     Active Substance: CELECOXIB
     Indication: ARTHRITIS
     Dosage: UNK
     Route: 048
     Dates: start: 2004
  2. COUMADIN [Suspect]
     Active Substance: WARFARIN SODIUM
     Indication: HEART RATE IRREGULAR
     Dosage: UNK

REACTIONS (7)
  - Arthritis [Unknown]
  - Diabetes mellitus [Unknown]
  - Prothrombin time prolonged [Unknown]
  - Heart rate irregular [Unknown]
  - Sleep apnoea syndrome [Unknown]
  - Overweight [Unknown]
  - Cardiac valve disease [Unknown]

NARRATIVE: CASE EVENT DATE: 20140708
